FAERS Safety Report 11254053 (Version 2)
Quarter: 2015Q3

REPORT INFORMATION
  Report Type: Report from Study
  Country: BR (occurrence: BR)
  Receive Date: 20150709
  Receipt Date: 20150911
  Transmission Date: 20151125
  Serious: Yes (Other)
  Sender: FDA-Public Use
  Company Number: BR-ABBVIE-15K-020-1421398-00

PATIENT
  Age: 41 Year
  Sex: Male
  Weight: 62 kg

DRUGS (4)
  1. RIVOTRIL [Concomitant]
     Active Substance: CLONAZEPAM
     Indication: SLEEP DISORDER THERAPY
     Route: 048
  2. BROMAZEPAM [Concomitant]
     Active Substance: BROMAZEPAM
     Indication: SLEEP DISORDER THERAPY
     Route: 048
     Dates: start: 2013
  3. AMPICILLIN [Concomitant]
     Active Substance: AMPICILLIN
     Indication: ANXIETY
     Route: 048
     Dates: start: 2012
  4. HUMIRA [Suspect]
     Active Substance: ADALIMUMAB
     Indication: ANKYLOSING SPONDYLITIS
     Route: 058
     Dates: start: 20150305

REACTIONS (8)
  - Syncope [Unknown]
  - Malaise [Unknown]
  - Suicidal ideation [Unknown]
  - Dyspnoea [Unknown]
  - Depression [Unknown]
  - Myalgia [Recovering/Resolving]
  - Stress [Unknown]
  - Ankylosing spondylitis [Not Recovered/Not Resolved]

NARRATIVE: CASE EVENT DATE: 2015
